FAERS Safety Report 12318084 (Version 1)
Quarter: 2016Q2

REPORT INFORMATION
  Report Type: Spontaneous
  Country: US (occurrence: None)
  Receive Date: 20160428
  Receipt Date: 20160428
  Transmission Date: 20160815
  Serious: No
  Sender: FDA-Public Use
  Company Number: None

PATIENT
  Age: 72 Year
  Sex: Female

DRUGS (1)
  1. MYLERAN [Suspect]
     Active Substance: BUSULFAN
     Indication: LYMPHOMA
     Dosage: 2 TAB T, W, F, SA, SU 1 TAB M AND R DIALY PO
     Route: 048
     Dates: start: 20160129

REACTIONS (4)
  - Nausea [None]
  - Diarrhoea [None]
  - Rash [None]
  - Vomiting [None]

NARRATIVE: CASE EVENT DATE: 201604
